FAERS Safety Report 9790429 (Version 3)
Quarter: 2014Q1

REPORT INFORMATION
  Report Type: Spontaneous
  Country: IL (occurrence: IL)
  Receive Date: 20131231
  Receipt Date: 20140218
  Transmission Date: 20141002
  Serious: Yes (Death, Hospitalization, Other)
  Sender: FDA-Public Use
  Company Number: IL-009507513-1312ISR011229

PATIENT
  Age: 56 Year
  Sex: Male

DRUGS (2)
  1. REBETOL [Suspect]
     Indication: HEPATITIS C
     Dosage: UNK
     Route: 048
     Dates: start: 2013, end: 2013
  2. PEGINTRON [Suspect]
     Indication: HEPATITIS C
     Dosage: UNK
     Dates: start: 2013, end: 2013

REACTIONS (6)
  - Death [Fatal]
  - Cardiac operation [Unknown]
  - Haemoglobin decreased [Unknown]
  - Angina pectoris [Unknown]
  - Catheterisation cardiac [Unknown]
  - Vascular graft [Unknown]
